FAERS Safety Report 7829858-0 (Version None)
Quarter: 2011Q4

REPORT INFORMATION
  Report Type: 
  Country: None (occurrence: None)
  Receive Date: 20111018
  Receipt Date: 20111007
  Transmission Date: 20120403
  Serious: Yes (Other)
  Sender: FDA-Public Use
  Company Number: ACO_27161_2011

PATIENT
  Age: 56 Year
  Sex: Male

DRUGS (11)
  1. OMEGA-3 FATTY ACIDS (OMEGA-3 FATTY ACIDS) [Concomitant]
  2. AMPYRA (DALFAMPRIDINE) TABLET, 10MG [Suspect]
     Indication: GAIT DISTURBANCE
     Dosage: 10 MG, BID
     Dates: start: 20101201
  3. CARDIZEM /0048701/ (DILTIAZEM) [Concomitant]
  4. GLIPIZIDE [Concomitant]
  5. NIACIN [Concomitant]
  6. VITAMINS NOS (VITAMINS NOS) [Concomitant]
  7. METOPROLOL TARTRATE [Concomitant]
  8. BACLOFEN [Concomitant]
  9. COPAXONE [Concomitant]
  10. FOSAMAX [Concomitant]
  11. LISINOPRIL [Concomitant]

REACTIONS (2)
  - LIMB INJURY [None]
  - DEEP VEIN THROMBOSIS [None]
